FAERS Safety Report 20875631 (Version 1)
Quarter: 2022Q2

REPORT INFORMATION
  Report Type: Report from Study
  Country: US (occurrence: US)
  Receive Date: 20220526
  Receipt Date: 20220526
  Transmission Date: 20220720
  Serious: Yes (Other)
  Sender: FDA-Public Use
  Company Number: US-KYOWAKIRIN-2022BKK007753

PATIENT

DRUGS (1)
  1. CRYSVITA [Suspect]
     Active Substance: BUROSUMAB-TWZA
     Indication: Hereditary hypophosphataemic rickets
     Dosage: 40 MG/ML, 1X/2 WEEKS
     Route: 065
     Dates: start: 20180107

REACTIONS (2)
  - Arnold-Chiari malformation [Unknown]
  - Epilepsy [Unknown]

NARRATIVE: CASE EVENT DATE: 20220322
